FAERS Safety Report 15804529 (Version 3)
Quarter: 2019Q2

REPORT INFORMATION
  Report Type: Spontaneous
  Country: US (occurrence: US)
  Receive Date: 20190109
  Receipt Date: 20190525
  Transmission Date: 20190711
  Serious: Yes (Hospitalization, Other)
  Sender: FDA-Public Use
  Company Number: PHEH2019US000477

PATIENT
  Age: 67 Year
  Sex: Female

DRUGS (2)
  1. LOSARTAN AND HYDROCHLOROTHIAZIDE [Suspect]
     Active Substance: HYDROCHLOROTHIAZIDE\LOSARTAN POTASSIUM
     Indication: HYPERTENSION
     Dosage: 1 DF, UNK (100/25)
     Route: 065
     Dates: start: 201202, end: 201608
  2. VERAPAMIL [Concomitant]
     Active Substance: VERAPAMIL HYDROCHLORIDE
     Indication: BLOOD PRESSURE INCREASED
     Route: 065

REACTIONS (17)
  - Thyroid cancer [Unknown]
  - Initial insomnia [Unknown]
  - Myalgia [Recovering/Resolving]
  - Musculoskeletal stiffness [Unknown]
  - Pain in extremity [Recovering/Resolving]
  - Hypoaesthesia [Unknown]
  - Joint stiffness [Unknown]
  - Blepharospasm [Recovered/Resolved]
  - Blood pressure increased [Unknown]
  - Bone pain [Recovering/Resolving]
  - Thyroid mass [Unknown]
  - Arthralgia [Recovering/Resolving]
  - Hyponatraemia [Unknown]
  - Muscular weakness [Unknown]
  - Peripheral swelling [Unknown]
  - Pain in extremity [Recovered/Resolved]
  - Joint swelling [Unknown]

NARRATIVE: CASE EVENT DATE: 201403
